FAERS Safety Report 7330334-2 (Version None)
Quarter: 2011Q1

REPORT INFORMATION
  Report Type: 
  Country: None (occurrence: None)
  Receive Date: 20110304
  Receipt Date: 20110224
  Transmission Date: 20110831
  Serious: Yes (Hospitalization)
  Sender: FDA-Public Use
  Company Number: US-BIOGENIDEC-2010BI039889

PATIENT
  Age: 44 Year
  Sex: Male

DRUGS (15)
  1. CEFTRIAXONE SODIUM [Concomitant]
  2. NALTREXONE [Concomitant]
     Route: 048
  3. PLAVIX [Concomitant]
     Route: 048
  4. PEPCID [Concomitant]
     Route: 048
  5. CITALOPRAM [Concomitant]
     Route: 048
  6. OMEPRAZOLE [Concomitant]
     Route: 048
  7. TYSABRI [Suspect]
     Indication: MULTIPLE SCLEROSIS
     Route: 042
     Dates: start: 20100812, end: 20100901
  8. CLONAZEPAM [Concomitant]
     Route: 048
  9. XENADERM [Concomitant]
  10. VICODIN [Concomitant]
     Route: 048
  11. ZOCOR [Concomitant]
     Route: 048
  12. DULCOLAX [Concomitant]
  13. BACLOFEN [Concomitant]
     Route: 048
  14. ATENOLOL [Concomitant]
     Route: 048
  15. ISOSORBIDE MONONITRATE [Concomitant]
     Route: 048

REACTIONS (7)
  - DRUG INEFFECTIVE [None]
  - STAPHYLOCOCCAL SEPSIS [None]
  - DEVICE RELATED INFECTION [None]
  - CLOSTRIDIAL INFECTION [None]
  - LETHARGY [None]
  - LOCALISED INFECTION [None]
  - SEPTIC ENCEPHALOPATHY [None]
